FAERS Safety Report 5480257-9 (Version None)
Quarter: 2007Q4

REPORT INFORMATION
  Report Type: 
  Country: None (occurrence: None)
  Receive Date: 20071009
  Receipt Date: 20071001
  Transmission Date: 20080405
  Serious: Yes (Death)
  Sender: FDA-Public Use
  Company Number: FR-BAYER-200710561BFR

PATIENT
  Age: 86 Year
  Sex: Male

DRUGS (6)
  1. CIFLOX [Suspect]
     Indication: ERYSIPELAS
     Dosage: TOTAL DAILY DOSE: 1000 MG
     Route: 048
     Dates: start: 20070808, end: 20070822
  2. LINEZOLID [Suspect]
     Indication: ERYSIPELAS
     Route: 048
     Dates: start: 20070808, end: 20070822
  3. TAZOCILLINE [Suspect]
     Indication: ERYSIPELAS
     Route: 042
     Dates: start: 20070808, end: 20070822
  4. COLCHIMAX [Suspect]
     Indication: CHONDROCALCINOSIS
     Route: 048
     Dates: start: 20070812, end: 20070822
  5. LOVENOX [Suspect]
     Indication: PHLEBITIS
     Dates: start: 20070730, end: 20070905
  6. PENICILLIN G [Concomitant]
     Indication: PHLEBITIS

REACTIONS (3)
  - LEUKOPENIA [None]
  - PANCYTOPENIA [None]
  - THROMBOCYTOPENIA [None]
